FAERS Safety Report 16040446 (Version 1)
Quarter: 2019Q1

REPORT INFORMATION
  Report Type: Spontaneous
  Country: FI (occurrence: FI)
  Receive Date: 20190306
  Receipt Date: 20190306
  Transmission Date: 20190418
  Serious: Yes (Other)
  Sender: FDA-Public Use
  Company Number: FI-TEVA-2019-FI-1018944

PATIENT
  Age: 39 Year
  Sex: Female

DRUGS (2)
  1. DIAZEPAM BP [Suspect]
     Active Substance: DIAZEPAM
     Indication: MIGRAINE
     Dosage: 5,MG,X1
     Route: 042
     Dates: start: 20190104, end: 20190104
  2. KETESSE [Concomitant]
     Active Substance: DEXKETOPROFEN TROMETAMOL
     Indication: MIGRAINE
     Dosage: 50,MG,X1
     Route: 042
     Dates: start: 20190104, end: 20190104

REACTIONS (1)
  - Injection site thrombosis [Not Recovered/Not Resolved]

NARRATIVE: CASE EVENT DATE: 201901
